FAERS Safety Report 11759376 (Version 1)
Quarter: 2015Q4

REPORT INFORMATION
  Report Type: Spontaneous
  Country: US (occurrence: None)
  Receive Date: 20151119
  Receipt Date: 20151119
  Transmission Date: 20160304
  Serious: No
  Sender: FDA-Public Use
  Company Number: None

PATIENT
  Age: 52 Year
  Sex: Female
  Weight: 77.11 kg

DRUGS (1)
  1. SYMBICORT [Suspect]
     Active Substance: BUDESONIDE\FORMOTEROL FUMARATE DIHYDRATE
     Indication: ASTHMA
     Route: 055
     Dates: start: 201507, end: 20151008

REACTIONS (9)
  - Dizziness [None]
  - Presyncope [None]
  - Mental impairment [None]
  - Activities of daily living impaired [None]
  - Memory impairment [None]
  - Head titubation [None]
  - Impaired work ability [None]
  - Fall [None]
  - Headache [None]

NARRATIVE: CASE EVENT DATE: 20150712
